FAERS Safety Report 25120321 (Version 1)
Quarter: 2025Q1

REPORT INFORMATION
  Report Type: Spontaneous
  Country: US (occurrence: None)
  Receive Date: 20250325
  Receipt Date: 20250325
  Transmission Date: 20250408
  Serious: Yes (unspecified)
  Sender: FDA-CTU
  Company Number: None

PATIENT
  Sex: Female
  Weight: 63.5 kg

DRUGS (5)
  1. ARMOUR THYROID [Suspect]
     Active Substance: THYROID, PORCINE
     Indication: Autoimmune thyroiditis
     Route: 048
     Dates: start: 20250310, end: 20250320
  2. B12 Quick Dissolve [Concomitant]
  3. VISION ALIVE MAX - EYE VITAMIN [Concomitant]
  4. VITAMINS [Concomitant]
     Active Substance: VITAMINS
  5. VITAMIN D3 [Concomitant]
     Active Substance: CHOLECALCIFEROL

REACTIONS (12)
  - Product substitution issue [None]
  - Dizziness [None]
  - Vertigo [None]
  - Headache [None]
  - Syncope [None]
  - Amnesia [None]
  - Rash macular [None]
  - Muscle spasms [None]
  - Muscle spasms [None]
  - Poor quality sleep [None]
  - Nightmare [None]
  - Product physical issue [None]
